FAERS Safety Report 6195320-7 (Version None)
Quarter: 2009Q2

REPORT INFORMATION
  Report Type: 
  Country: None (occurrence: None)
  Receive Date: 20090519
  Receipt Date: 20090512
  Transmission Date: 20091009
  Serious: Yes (Other)
  Sender: FDA-Public Use
  Company Number: US-ELI_LILLY_AND_COMPANY-US200905002249

PATIENT
  Sex: Male

DRUGS (6)
  1. HUMALOG [Suspect]
  2. LANTUS [Concomitant]
  3. LIPITOR [Concomitant]
  4. CALCIUM [Concomitant]
  5. ZOLOFT [Concomitant]
     Indication: DEPRESSION
  6. SYNTHROID [Concomitant]
     Indication: THYROID DISORDER

REACTIONS (5)
  - CATARACT [None]
  - DEPRESSION [None]
  - EYE HAEMORRHAGE [None]
  - THYROID DISORDER [None]
  - VISUAL ACUITY REDUCED [None]
